FAERS Safety Report 9084116 (Version 1)
Quarter: 2013Q1

REPORT INFORMATION
  Report Type: Spontaneous
  Country: US (occurrence: US)
  Receive Date: 20130130
  Receipt Date: 20130130
  Transmission Date: 20140127
  Serious: Yes (Other)
  Sender: FDA-Public Use
  Company Number: US-ABBOTT-12P-163-0954217-00

PATIENT
  Sex: Male
  Weight: 113.05 kg

DRUGS (4)
  1. HUMIRA 40 MG/0.8 ML PEN [Suspect]
     Indication: CROHN^S DISEASE
     Route: 058
     Dates: start: 201203, end: 201203
  2. HUMIRA 40 MG/0.8 ML PEN [Suspect]
     Route: 058
     Dates: start: 201203, end: 201203
  3. HUMIRA 40 MG/0.8 ML PEN [Suspect]
     Route: 058
     Dates: start: 20120712
  4. UNKNOWN MEDICATIONS [Concomitant]
     Indication: CROHN^S DISEASE

REACTIONS (2)
  - Crohn^s disease [Recovered/Resolved]
  - Abdominal pain [Recovered/Resolved]
